FAERS Safety Report 14692651 (Version 4)
Quarter: 2018Q2

REPORT INFORMATION
  Report Type: Spontaneous
  Country: US (occurrence: US)
  Receive Date: 20180329
  Receipt Date: 20180430
  Transmission Date: 20180711
  Serious: No
  Sender: FDA-Public Use
  Company Number: US-AMGEN-USASP2018041514

PATIENT
  Age: 57 Year
  Sex: Female

DRUGS (4)
  1. HUMIRA [Suspect]
     Active Substance: ADALIMUMAB
     Indication: FELTY^S SYNDROME
     Dosage: UNK
     Route: 058
     Dates: start: 201708, end: 20180308
  2. XELJANZ XR [Concomitant]
     Active Substance: TOFACITINIB CITRATE
     Dosage: 11 MG, QD
     Route: 048
  3. ENBREL [Suspect]
     Active Substance: ETANERCEPT
     Indication: FELTY^S SYNDROME
     Dosage: 50 MG, QWK
     Route: 058
     Dates: start: 20180303, end: 20180319
  4. RASUVO [Concomitant]
     Active Substance: METHOTREXATE SODIUM
     Indication: FELTY^S SYNDROME
     Dosage: 20 MG, QWK (20 MG/0.4 ML)
     Route: 058
     Dates: start: 201706, end: 201803

REACTIONS (3)
  - Off label use [Unknown]
  - Rash [Unknown]
  - Drug ineffective [Unknown]

NARRATIVE: CASE EVENT DATE: 201803
